FAERS Safety Report 9829371 (Version 3)
Quarter: 2014Q1

REPORT INFORMATION
  Report Type: Spontaneous
  Country: US (occurrence: US)
  Receive Date: 20140120
  Receipt Date: 20140123
  Transmission Date: 20141002
  Serious: Yes (Hospitalization, Other)
  Sender: FDA-Public Use
  Company Number: US-ROCHE-GNE254070

PATIENT
  Age: 15 Year
  Sex: Female
  Weight: 64.07 kg

DRUGS (8)
  1. XOLAIR [Suspect]
     Indication: ASTHMA
     Dosage: 300 MG, Q4W, LAST DOSE WAS ON 08/JAN/2008
     Route: 058
     Dates: start: 20071207
  2. XOLAIR [Suspect]
     Route: 058
     Dates: start: 20080303, end: 20080415
  3. SYMBICORT [Concomitant]
     Indication: ASTHMA
     Dosage: 2 PUFF, BID, DOSE 2 PUFF, DAILY DOSE 4 PUFF
     Route: 058
     Dates: start: 20071016
  4. SYMBICORT [Concomitant]
     Dosage: 160/4.5 MG
     Route: 058
     Dates: start: 200607
  5. ATROVENT HFA [Concomitant]
     Indication: ASTHMA
     Dosage: 10 MCG, PRN
     Route: 058
     Dates: start: 200607
  6. ZYRTEC [Concomitant]
     Indication: HYPERSENSITIVITY
     Dosage: 10 MG, QD
     Route: 048
     Dates: start: 200607
  7. ETODOLAC [Concomitant]
     Indication: PAIN
     Dosage: 400 MG, PRN
     Route: 048
     Dates: start: 20080601
  8. EPIPEN [Concomitant]
     Indication: HYPERSENSITIVITY
     Dosage: 0.3 UNK, PRN
     Route: 065
     Dates: start: 200607

REACTIONS (2)
  - Anaphylactic reaction [Unknown]
  - Asthma [Unknown]
